FAERS Safety Report 8471644-5 (Version None)
Quarter: 2012Q2

REPORT INFORMATION
  Report Type: 
  Country: None (occurrence: None)
  Receive Date: 20120627
  Receipt Date: 20120619
  Transmission Date: 20120825
  Serious: Yes (Hospitalization)
  Sender: FDA-Public Use
  Company Number: CA-ABBOTT-12P-028-0943616-00

PATIENT
  Sex: Female

DRUGS (5)
  1. HUMIRA [Suspect]
     Indication: COLITIS ULCERATIVE
     Route: 058
     Dates: start: 20120418
  2. CALCIUM [Concomitant]
     Indication: BONE DISORDER
     Route: 048
  3. FOLIC ACID [Concomitant]
     Indication: GASTROINTESTINAL DISORDER
     Route: 048
  4. METHOTREXATE [Concomitant]
     Indication: COLITIS ULCERATIVE
     Route: 058
  5. HUMIRA [Suspect]
     Route: 058

REACTIONS (6)
  - VOMITING [None]
  - NAUSEA [None]
  - DIARRHOEA [None]
  - ABDOMINAL PAIN UPPER [None]
  - PYREXIA [None]
  - VIRAL INFECTION [None]
